FAERS Safety Report 8470647-4 (Version None)
Quarter: 2012Q2

REPORT INFORMATION
  Report Type: 
  Country: None (occurrence: None)
  Receive Date: 20120627
  Receipt Date: 20120625
  Transmission Date: 20120825
  Serious: Yes (Death)
  Sender: FDA-Public Use
  Company Number: PHHY2012CO054589

PATIENT
  Sex: Female

DRUGS (5)
  1. ACTONEL [Concomitant]
     Dosage: UNK UKN, UNK
  2. LIMARA [Concomitant]
     Dosage: UNK UKN, UNK
  3. ZOLEDRONOC ACID [Suspect]
     Indication: OSTEOPOROSIS
     Dosage: 5 MG, YEARLY
     Route: 042
     Dates: start: 20110101
  4. OMEPRAZOLE [Concomitant]
     Dosage: UNK UKN, UNK
  5. SORPRIDERM [Concomitant]
     Indication: SLEEP DISORDER
     Dosage: UNK UKN, UNK

REACTIONS (4)
  - DYSPNOEA [None]
  - VITAMIN D DECREASED [None]
  - PULMONARY FIBROSIS [None]
  - SJOGREN'S SYNDROME [None]
